FAERS Safety Report 11233376 (Version 1)
Quarter: 2015Q3

REPORT INFORMATION
  Report Type: Spontaneous
  Country: MX (occurrence: MX)
  Receive Date: 20150702
  Receipt Date: 20150702
  Transmission Date: 20151125
  Serious: Yes (Death)
  Sender: FDA-Public Use
  Company Number: MX-ROCHE-1602183

PATIENT
  Age: 71 Year
  Sex: Female
  Weight: 51 kg

DRUGS (2)
  1. HERCEPTIN [Suspect]
     Active Substance: TRASTUZUMAB
     Indication: BREAST CANCER METASTATIC
     Dosage: 6 CYCLES APPLIED.
     Route: 065
     Dates: start: 20141014, end: 20150428
  2. XELODA [Suspect]
     Active Substance: CAPECITABINE
     Indication: BREAST CANCER METASTATIC
     Dosage: DURING 14 DAYS OF TREATMENT AND 7 DAYS OF REST, 6 CYCLES APPLIED
     Route: 065
     Dates: start: 20141014, end: 20150428

REACTIONS (1)
  - Death [Fatal]
